FAERS Safety Report 24085689 (Version 2)
Quarter: 2024Q3

REPORT INFORMATION
  Report Type: Report from Study
  Country: US (occurrence: US)
  Receive Date: 20240712
  Receipt Date: 20240729
  Transmission Date: 20241016
  Serious: Yes (Other)
  Sender: XERIS PHARMACEUTICALS
  Company Number: US-BRIAN CONNER SVP QUALITY AND CHIEF COMPLIANCE OFFICER-2024XER00177

PATIENT
  Sex: Male
  Weight: 109.3 kg

DRUGS (15)
  1. RECORLEV [Suspect]
     Active Substance: LEVOKETOCONAZOLE
     Indication: Cushing^s syndrome
     Dosage: 150 MG, 2X/DAY
     Route: 048
     Dates: start: 20240312
  2. AMLODIPINE [Concomitant]
     Active Substance: AMLODIPINE BESYLATE
     Dosage: UNK
  3. AMLODIPINE [Concomitant]
     Active Substance: AMLODIPINE BESYLATE
     Dosage: HALF DOSE
  4. HYDROCHLOROTHIAZIDE [Concomitant]
     Active Substance: HYDROCHLOROTHIAZIDE
     Dosage: UNK
     Dates: end: 202403
  5. MOUNJARO [Concomitant]
     Active Substance: TIRZEPATIDE
  6. PIOGLITAZONE [Concomitant]
     Active Substance: PIOGLITAZONE
  7. GABAPENTIN [Concomitant]
     Active Substance: GABAPENTIN
  8. PRAVASTATIN [Concomitant]
     Active Substance: PRAVASTATIN
  9. ENAZAPRIL [Concomitant]
  10. FLUOXETINE [Concomitant]
     Active Substance: FLUOXETINE HYDROCHLORIDE
  11. FAMOTIDINE [Concomitant]
     Active Substance: FAMOTIDINE
  12. CYCLOBENZAPRINE [Concomitant]
     Active Substance: CYCLOBENZAPRINE
  13. NORCO [Concomitant]
     Active Substance: ACETAMINOPHEN\HYDROCODONE BITARTRATE
  14. MORPHINE SULFATE [Concomitant]
     Active Substance: MORPHINE SULFATE
  15. SUMATRIPTAN [Concomitant]
     Active Substance: SUMATRIPTAN

REACTIONS (18)
  - Loss of consciousness [Unknown]
  - Tooth extraction [Unknown]
  - Influenza like illness [Recovering/Resolving]
  - Muscular weakness [Recovering/Resolving]
  - Vertigo positional [Not Recovered/Not Resolved]
  - Illness [Unknown]
  - Weight decreased [Unknown]
  - Blood pressure decreased [Recovering/Resolving]
  - Malaise [Unknown]
  - Abnormal behaviour [Unknown]
  - Fall [Unknown]
  - Feeling abnormal [Unknown]
  - Vertigo [Recovered/Resolved]
  - Inner ear disorder [Recovering/Resolving]
  - Dizziness [Unknown]
  - Nausea [Recovered/Resolved]
  - Depression [Recovering/Resolving]
  - Blood potassium decreased [Unknown]

NARRATIVE: CASE EVENT DATE: 20240101
